FAERS Safety Report 14358405 (Version 2)
Quarter: 2018Q3

REPORT INFORMATION
  Report Type: Report from Study
  Country: US (occurrence: US)
  Receive Date: 20180105
  Receipt Date: 20180828
  Transmission Date: 20181010
  Serious: No
  Sender: FDA-Public Use
  Company Number: US-SA-2017SA218294

PATIENT
  Age: 64 Year
  Sex: Female
  Weight: 57.6 kg

DRUGS (2)
  1. DUPILUMAB [Suspect]
     Active Substance: DUPILUMAB
     Indication: DERMATITIS ATOPIC
     Dosage: 600 MG,1X
     Route: 058
     Dates: start: 201710, end: 201710
  2. DUPILUMAB [Suspect]
     Active Substance: DUPILUMAB
     Dosage: 300 MG,QOW
     Route: 058
     Dates: start: 20171027, end: 201803

REACTIONS (16)
  - Muscle tightness [Unknown]
  - Pain [Unknown]
  - Lacrimation increased [Unknown]
  - Dry eye [Unknown]
  - Lipoma [Unknown]
  - Pain [Unknown]
  - Back pain [Unknown]
  - Dry skin [Unknown]
  - Blood blister [Unknown]
  - Contusion [Unknown]
  - Pain in extremity [Unknown]
  - Musculoskeletal stiffness [Unknown]
  - Ectropion [Unknown]
  - Ocular hyperaemia [Unknown]
  - Burning sensation [Unknown]
  - Headache [Unknown]

NARRATIVE: CASE EVENT DATE: 2017
